FAERS Safety Report 24120585 (Version 1)
Quarter: 2024Q3

REPORT INFORMATION
  Report Type: Spontaneous
  Country: US (occurrence: US)
  Receive Date: 20240722
  Receipt Date: 20240722
  Transmission Date: 20241016
  Serious: No
  Sender: STI PHARMA
  Company Number: US-STI Pharma LLC-2159282

PATIENT
  Age: 59 Year
  Sex: Female

DRUGS (3)
  1. ETHAMBUTOL HYDROCHLORIDE [Suspect]
     Active Substance: ETHAMBUTOL HYDROCHLORIDE
     Dates: start: 202205
  2. AZITHROMYCIN [Concomitant]
     Active Substance: AZITHROMYCIN
  3. CLOFAZIMINE [Concomitant]
     Active Substance: CLOFAZIMINE

REACTIONS (3)
  - Dyspnoea [Unknown]
  - Computerised tomogram abnormal [Unknown]
  - Cough [Unknown]
